FAERS Safety Report 10627456 (Version 4)
Quarter: 2015Q1

REPORT INFORMATION
  Report Type: Spontaneous
  Country: US (occurrence: US)
  Receive Date: 20141205
  Receipt Date: 20150224
  Transmission Date: 20150720
  Serious: No
  Sender: FDA-Public Use
  Company Number: US-AMGEN-USASP2014093869

PATIENT
  Age: 75 Year
  Sex: Female

DRUGS (4)
  1. ENBREL [Suspect]
     Active Substance: ETANERCEPT
     Dosage: UNK
     Route: 065
  2. ENBREL [Suspect]
     Active Substance: ETANERCEPT
     Indication: RHEUMATOID ARTHRITIS
     Dosage: 50 MG, QWK
     Route: 065
  3. ENBREL [Suspect]
     Active Substance: ETANERCEPT
     Dosage: UNK UNK, UNK
     Route: 065
  4. METHOTREXATE [Concomitant]
     Active Substance: METHOTREXATE
     Dosage: 8 TABLETS EVERY 5 DAYS

REACTIONS (13)
  - Pain in extremity [Not Recovered/Not Resolved]
  - Rash [Recovered/Resolved]
  - Malaise [Not Recovered/Not Resolved]
  - Pyrexia [Recovered/Resolved]
  - Activities of daily living impaired [Not Recovered/Not Resolved]
  - General symptom [Not Recovered/Not Resolved]
  - Drug administration error [Unknown]
  - Musculoskeletal disorder [Not Recovered/Not Resolved]
  - Insomnia [Not Recovered/Not Resolved]
  - Injection site discomfort [Unknown]
  - Skin sensitisation [Not Recovered/Not Resolved]
  - Mobility decreased [Not Recovered/Not Resolved]
  - Peripheral swelling [Not Recovered/Not Resolved]

NARRATIVE: CASE EVENT DATE: 20141110
